FAERS Safety Report 23162915 (Version 1)
Quarter: 2023Q4

REPORT INFORMATION
  Report Type: Other
  Country: US (occurrence: None)
  Receive Date: 20231109
  Receipt Date: 20231109
  Transmission Date: 20240110
  Serious: No
  Sender: FDA-Public Use
  Company Number: US-ROCHE-3280547

PATIENT
  Age: 19 Year
  Sex: Male

DRUGS (1)
  1. COBIMETINIB [Suspect]
     Active Substance: COBIMETINIB
     Indication: Neurodegenerative disorder
     Route: 065

REACTIONS (1)
  - Dermatitis acneiform [Unknown]
